FAERS Safety Report 23395229 (Version 1)
Quarter: 2024Q1

REPORT INFORMATION
  Report Type: Spontaneous
  Country: US (occurrence: US)
  Receive Date: 20240112
  Receipt Date: 20240112
  Transmission Date: 20240410
  Serious: Yes (Death, Hospitalization, Other)
  Sender: FDA-Public Use
  Company Number: US-JNJFOC-20231226911

PATIENT

DRUGS (6)
  1. TECVAYLI [Suspect]
     Active Substance: TECLISTAMAB-CQYV
     Indication: Plasma cell myeloma refractory
     Route: 058
  2. TECVAYLI [Suspect]
     Active Substance: TECLISTAMAB-CQYV
     Route: 058
  3. TECVAYLI [Suspect]
     Active Substance: TECLISTAMAB-CQYV
     Route: 058
  4. DEXAMETHASONE [Concomitant]
     Active Substance: DEXAMETHASONE
     Indication: Plasma cell myeloma refractory
     Route: 065
  5. ACETAMINOPHEN [Concomitant]
     Active Substance: ACETAMINOPHEN
     Indication: Plasma cell myeloma refractory
     Route: 065
  6. DIPHENHYDRAMINE [Concomitant]
     Active Substance: DIPHENHYDRAMINE
     Indication: Plasma cell myeloma refractory
     Route: 065

REACTIONS (18)
  - Sepsis [Fatal]
  - COVID-19 pneumonia [Fatal]
  - Pneumonia viral [Fatal]
  - Pneumonia viral [Unknown]
  - COVID-19 [Unknown]
  - Immune effector cell-associated neurotoxicity syndrome [Unknown]
  - Cytokine release syndrome [Unknown]
  - Leukopenia [Unknown]
  - Thrombocytopenia [Unknown]
  - Neutropenia [Unknown]
  - Respiratory tract infection [Unknown]
  - Pneumonia bacterial [Unknown]
  - Anaemia [Unknown]
  - Therapy non-responder [Unknown]
  - Infection [Unknown]
  - Bacterial infection [Unknown]
  - Fungal infection [Unknown]
  - Viral infection [Unknown]
